FAERS Safety Report 12384048 (Version 1)
Quarter: 2016Q2

REPORT INFORMATION
  Report Type: Spontaneous
  Country: US (occurrence: None)
  Receive Date: 20160518
  Receipt Date: 20160518
  Transmission Date: 20160815
  Serious: No
  Sender: FDA-Public Use
  Company Number: None

PATIENT
  Age: 48 Year
  Sex: Female

DRUGS (1)
  1. SYNTHROID [Suspect]
     Active Substance: LEVOTHYROXINE SODIUM
     Indication: HYPOTHYROIDISM
     Dosage: PILL 1 DAILY MOUTH?
     Route: 048
     Dates: start: 20140111, end: 20160215

REACTIONS (19)
  - Muscular weakness [None]
  - Alopecia [None]
  - Carpal tunnel syndrome [None]
  - Throat irritation [None]
  - Drug effect decreased [None]
  - Tremor [None]
  - Skin warm [None]
  - Fluid retention [None]
  - Erythema [None]
  - Fatigue [None]
  - Feeling jittery [None]
  - Memory impairment [None]
  - Product formulation issue [None]
  - Pruritus [None]
  - Weight increased [None]
  - Heart rate decreased [None]
  - Quality of life decreased [None]
  - Nervous system disorder [None]
  - Product substitution issue [None]

NARRATIVE: CASE EVENT DATE: 20160215
